FAERS Safety Report 8056634-9 (Version None)
Quarter: 2012Q1

REPORT INFORMATION
  Report Type: 
  Country: None (occurrence: None)
  Receive Date: 20120119
  Receipt Date: 20120111
  Transmission Date: 20120608
  Serious: Yes (Other)
  Sender: FDA-Public Use
  Company Number: CHPA2012US001038

PATIENT
  Age: 59 Year
  Sex: Female

DRUGS (1)
  1. EXCEDRIN EXTRA STRENGTH CAPLETS [Suspect]
     Indication: HEADACHE
     Dosage: 1 DF, ONCE/SINGLE
     Route: 048
     Dates: start: 20120106, end: 20120106

REACTIONS (4)
  - LOSS OF CONSCIOUSNESS [None]
  - FAECAL INCONTINENCE [None]
  - MALAISE [None]
  - UNDERDOSE [None]
